FAERS Safety Report 24045517 (Version 1)
Quarter: 2024Q3

REPORT INFORMATION
  Report Type: Report from Study
  Country: DE (occurrence: DE)
  Receive Date: 20240703
  Receipt Date: 20240703
  Transmission Date: 20241017
  Serious: Yes (Hospitalization, Other)
  Sender: BAYER
  Company Number: DE-BAYER-2024A066784

PATIENT
  Age: 81 Year
  Sex: Male

DRUGS (7)
  1. ADEMPAS [Suspect]
     Active Substance: RIOCIGUAT
     Indication: Pulmonary hypertension
     Dosage: 1.5 MG
     Dates: start: 20240425
  2. ADEMPAS [Suspect]
     Active Substance: RIOCIGUAT
     Indication: Pulmonary hypertension
     Dosage: 2 MG
     Dates: start: 20240510
  3. ADEMPAS [Suspect]
     Active Substance: RIOCIGUAT
     Indication: Pulmonary hypertension
     Dosage: 2.5 MG
     Dates: start: 20240521, end: 20240528
  4. ADEMPAS [Suspect]
     Active Substance: RIOCIGUAT
     Indication: Pulmonary hypertension
     Dosage: 2 MG, TID
  5. ELIQUIS [Concomitant]
     Active Substance: APIXABAN
  6. VITAMIN D3 [Concomitant]
     Active Substance: CHOLECALCIFEROL
  7. IODINE [Concomitant]
     Active Substance: IODINE

REACTIONS (13)
  - Syncope [Recovered/Resolved]
  - Vomiting [Recovered/Resolved]
  - Gastrointestinal disorder [Recovered/Resolved]
  - Diarrhoea [Recovered/Resolved]
  - Blood pressure fluctuation [None]
  - Hypotension [Recovered/Resolved]
  - Haemorrhage [Recovered/Resolved]
  - Diarrhoea haemorrhagic [Recovered/Resolved]
  - Apathy [Unknown]
  - Fatigue [None]
  - Asthenia [Recovered/Resolved]
  - Dyspepsia [None]
  - Hypertension [Recovered/Resolved]

NARRATIVE: CASE EVENT DATE: 20240503
